FAERS Safety Report 16281965 (Version 1)
Quarter: 2019Q2

REPORT INFORMATION
  Report Type: Spontaneous
  Country: GB (occurrence: GB)
  Receive Date: 20190507
  Receipt Date: 20190507
  Transmission Date: 20190711
  Serious: Yes (Life-Threatening, Hospitalization)
  Sender: FDA-Public Use
  Company Number: GB-MYLANLABS-2019M1041450

PATIENT
  Age: 58 Year
  Sex: Female
  Weight: 54.7 kg

DRUGS (1)
  1. IMATINIB. [Suspect]
     Active Substance: IMATINIB MESYLATE
     Indication: GASTROINTESTINAL STROMAL TUMOUR
     Dosage: 400 MILLIGRAM
     Route: 048
     Dates: start: 20181004, end: 20181016

REACTIONS (13)
  - Nausea [Recovered/Resolved]
  - Mouth ulceration [Unknown]
  - Swelling face [Recovering/Resolving]
  - Hypersensitivity [Unknown]
  - Oropharyngeal pain [Unknown]
  - Swelling of eyelid [Recovering/Resolving]
  - Tonsillar ulcer [Unknown]
  - Rash macular [Unknown]
  - Insomnia [Unknown]
  - Pharyngeal swelling [Unknown]
  - Rash [Unknown]
  - Erythema [Unknown]
  - Swelling [Recovering/Resolving]

NARRATIVE: CASE EVENT DATE: 20181009
